FAERS Safety Report 19005725 (Version 1)
Quarter: 2021Q1

REPORT INFORMATION
  Report Type: Spontaneous
  Country: CA (occurrence: CA)
  Receive Date: 20210314
  Receipt Date: 20210314
  Transmission Date: 20210420
  Serious: Yes (Hospitalization, Other)
  Sender: FDA-Public Use
  Company Number: CA-JNJFOC-20210311775

PATIENT
  Age: 44 Year
  Sex: Male

DRUGS (34)
  1. APO?CLOZAPINE [Suspect]
     Active Substance: CLOZAPINE
     Route: 048
  2. CLOZAPINE. [Suspect]
     Active Substance: CLOZAPINE
     Route: 065
  3. RISPERDAL [Suspect]
     Active Substance: RISPERIDONE
     Indication: DEPRESSION
     Route: 065
  4. BUPROPION. [Suspect]
     Active Substance: BUPROPION
     Indication: DEPRESSION
     Route: 065
  5. CITALOPRAM [Suspect]
     Active Substance: CITALOPRAM HYDROBROMIDE
     Indication: PSYCHOTIC DISORDER
     Route: 065
  6. QUETIAPINE. [Suspect]
     Active Substance: QUETIAPINE
     Indication: DEPRESSION
     Route: 048
  7. APO?CLOZAPINE [Suspect]
     Active Substance: CLOZAPINE
     Route: 046
  8. VENLAFAXINE [Suspect]
     Active Substance: VENLAFAXINE HYDROCHLORIDE
     Route: 065
  9. TENOFOVIR [Concomitant]
     Active Substance: TENOFOVIR
     Indication: HIV INFECTION
  10. CLONAZEPAM. [Suspect]
     Active Substance: CLONAZEPAM
     Indication: DEPRESSION
     Route: 065
  11. RITONAVIR. [Suspect]
     Active Substance: RITONAVIR
     Indication: HIV INFECTION
     Route: 065
  12. APO?CLOZAPINE [Suspect]
     Active Substance: CLOZAPINE
     Route: 065
  13. CLOZAPINE. [Suspect]
     Active Substance: CLOZAPINE
     Indication: MAJOR DEPRESSION
     Route: 065
  14. CLOZAPINE. [Suspect]
     Active Substance: CLOZAPINE
     Route: 048
  15. VENLAFAXINE [Suspect]
     Active Substance: VENLAFAXINE HYDROCHLORIDE
     Indication: MAJOR DEPRESSION
     Route: 065
  16. EMTRICITABINE [Concomitant]
     Active Substance: EMTRICITABINE
     Indication: PRODUCT USED FOR UNKNOWN INDICATION
  17. ENFUVIRTIDE. [Concomitant]
     Active Substance: ENFUVIRTIDE
     Indication: HIV INFECTION
  18. ATAZANAVIR. [Suspect]
     Active Substance: ATAZANAVIR
     Indication: HIV INFECTION
     Route: 065
  19. APO?CLOZAPINE [Suspect]
     Active Substance: CLOZAPINE
     Route: 048
  20. CLOZAPINE. [Suspect]
     Active Substance: CLOZAPINE
     Route: 065
  21. HALDOL [Suspect]
     Active Substance: HALOPERIDOL
     Indication: MAJOR DEPRESSION
     Route: 065
  22. SUSTIVA [Suspect]
     Active Substance: EFAVIRENZ
     Indication: HIV INFECTION
     Route: 065
  23. CLOZAPINE. [Suspect]
     Active Substance: CLOZAPINE
     Route: 065
  24. CLOZAPINE. [Suspect]
     Active Substance: CLOZAPINE
     Route: 065
  25. EMTRIVA [Concomitant]
     Active Substance: EMTRICITABINE
     Indication: HIV INFECTION
     Route: 065
  26. APO?CLOZAPINE [Suspect]
     Active Substance: CLOZAPINE
     Indication: PRODUCT USED FOR UNKNOWN INDICATION
     Route: 066
  27. APO?CLOZAPINE [Suspect]
     Active Substance: CLOZAPINE
     Route: 048
  28. CLOZAPINE. [Suspect]
     Active Substance: CLOZAPINE
     Route: 048
  29. APO?CLOZAPINE [Suspect]
     Active Substance: CLOZAPINE
     Route: 065
  30. CLOZAPINE. [Suspect]
     Active Substance: CLOZAPINE
     Route: 065
  31. CLOZAPINE. [Suspect]
     Active Substance: CLOZAPINE
     Route: 048
  32. APO?CLOZAPINE [Suspect]
     Active Substance: CLOZAPINE
     Route: 065
  33. CLOZAPINE. [Suspect]
     Active Substance: CLOZAPINE
     Route: 065
  34. T?20 [Concomitant]
     Active Substance: ENFUVIRTIDE
     Indication: PRODUCT USED FOR UNKNOWN INDICATION
     Route: 065

REACTIONS (21)
  - Depression suicidal [Unknown]
  - Depressive symptom [Unknown]
  - Psychotic disorder [Unknown]
  - Salivary hypersecretion [Unknown]
  - Product use in unapproved indication [Unknown]
  - Suicidal ideation [Unknown]
  - Pain [Unknown]
  - Muscle rigidity [Unknown]
  - Rebound effect [Unknown]
  - Drug interaction [Unknown]
  - Retching [Unknown]
  - Psychomotor skills impaired [Unknown]
  - Anxiety [Unknown]
  - Depression [Unknown]
  - Psychiatric decompensation [Unknown]
  - Tearfulness [Unknown]
  - Paranoia [Unknown]
  - Constipation [Unknown]
  - Sedation [Unknown]
  - Gastric infection [Unknown]
  - Abdominal pain [Unknown]
